FAERS Safety Report 9889634 (Version 1)
Quarter: 2014Q1

REPORT INFORMATION
  Report Type: Spontaneous
  Country: FR (occurrence: FR)
  Receive Date: 20140211
  Receipt Date: 20140211
  Transmission Date: 20141002
  Serious: Yes (Hospitalization)
  Sender: FDA-Public Use
  Company Number: FR-MYLANLABS-2014S1002212

PATIENT
  Age: 35 Year
  Sex: Female

DRUGS (3)
  1. ASPIRIN [Suspect]
     Indication: ANTICOAGULANT THERAPY
     Route: 065
  2. FLUINDIONE [Suspect]
     Indication: ANTICOAGULANT THERAPY
     Route: 065
  3. ACEBUTOLOL [Suspect]
     Indication: INTENTIONAL OVERDOSE
     Route: 048

REACTIONS (4)
  - Intentional overdose [Recovered/Resolved]
  - Haemorrhage intracranial [Recovering/Resolving]
  - Cardiogenic shock [Recovered/Resolved]
  - Cardiac failure [Recovering/Resolving]
